FAERS Safety Report 9303231 (Version 1)
Quarter: 2013Q2

REPORT INFORMATION
  Report Type: Spontaneous
  Country: US (occurrence: None)
  Receive Date: 20130521
  Receipt Date: 20130521
  Transmission Date: 20140414
  Serious: Yes (Other)
  Sender: FDA-Public Use
  Company Number: None

PATIENT
  Age: 68 Year
  Sex: Female
  Weight: 86.18 kg

DRUGS (2)
  1. PREMARIN [Suspect]
     Indication: UTERINE ATROPHY
     Dosage: 1 - PEA SIZE 3XWEEK SPREAD ON OUTSIDE OF VAGINA
     Dates: start: 2010, end: 2012
  2. PREMARIN [Suspect]
     Indication: ATROPHY
     Dosage: 1 - PEA SIZE 3XWEEK SPREAD ON OUTSIDE OF VAGINA
     Dates: start: 2010, end: 2012

REACTIONS (2)
  - Scar [None]
  - Skin irritation [None]
